FAERS Safety Report 5474578-3 (Version None)
Quarter: 2007Q4

REPORT INFORMATION
  Report Type: 
  Country: None (occurrence: None)
  Receive Date: 20071002
  Receipt Date: 20070925
  Transmission Date: 20080405
  Serious: Yes (Hospitalization)
  Sender: FDA-Public Use
  Company Number: PHBS2007JP15068

PATIENT
  Age: 12 Year
  Sex: Male

DRUGS (3)
  1. SANDOSTATIN LAR [Suspect]
     Indication: PITUITARY TUMOUR BENIGN
     Dosage: 20 MG, UNK
     Route: 030
     Dates: start: 20070613
  2. LOXONIN [Concomitant]
  3. TESTOSTERONE ENANTHATE [Concomitant]
     Indication: GIGANTISM
     Dosage: 250 MG/D
     Dates: start: 20070711, end: 20070809

REACTIONS (4)
  - FLUID RETENTION [None]
  - INFLAMMATION [None]
  - OSTEONECROSIS [None]
  - SURGERY [None]
